FAERS Safety Report 9222591 (Version 1)
Quarter: 2013Q1

REPORT INFORMATION
  Report Type: Spontaneous
  Country: US (occurrence: None)
  Receive Date: 20120914
  Receipt Date: 20120914
  Transmission Date: 20140127
  Serious: No
  Sender: FDA-Public Use
  Company Number: JPI-P-021472

PATIENT
  Age: 40 Year
  Sex: Female
  Weight: 136.08 kg

DRUGS (5)
  1. XYREM (500 MILLIGRAM/MILLILITERS, SOLUTION) (SODIUM OXYBATE) [Suspect]
     Indication: NARCOLEPSY
     Route: 048
     Dates: start: 20120511, end: 20120517
  2. ANTIBIOTICS [Concomitant]
  3. ARMODAFINIL [Concomitant]
  4. METHYLPHENIDATE HYDROCHLORIDE [Concomitant]
  5. NAPROXEN [Concomitant]

REACTIONS (18)
  - Sleep disorder [None]
  - Erythema [None]
  - Anxiety [None]
  - Oliguria [None]
  - Dry mouth [None]
  - Vomiting [None]
  - Throat irritation [None]
  - Oedema peripheral [None]
  - Feeling hot [None]
  - Dizziness [None]
  - Tremor [None]
  - Decreased appetite [None]
  - Headache [None]
  - Condition aggravated [None]
  - Malaise [None]
  - Fatigue [None]
  - Hypoaesthesia [None]
  - Asthenia [None]
